FAERS Safety Report 11364887 (Version 1)
Quarter: 2015Q3

REPORT INFORMATION
  Report Type: Spontaneous
  Country: HR (occurrence: HR)
  Receive Date: 20150811
  Receipt Date: 20150811
  Transmission Date: 20151125
  Serious: Yes (Other)
  Sender: FDA-Public Use
  Company Number: HR-TEVA-584128ISR

PATIENT
  Age: 58 Year
  Sex: Male
  Weight: 72 kg

DRUGS (3)
  1. FLUOROURACIL PLIVA [Suspect]
     Active Substance: FLUOROURACIL
     Indication: BILE DUCT CANCER
     Dosage: 750 MILLIGRAM DAILY; FORM OF ADMINISTRATION: VIALS
     Route: 042
     Dates: start: 20150601, end: 20150605
  2. METOKLOPRAMID [Concomitant]
     Indication: ANTIEMETIC SUPPORTIVE CARE
     Dosage: 1 DOSAGE FORMS DAILY; FORM OF ADMINISTRATION: AMPULE. DF=1 AMPOULE
     Route: 042
     Dates: start: 20150601, end: 20150605
  3. CALCIUMFOLINATE EBEWE [Concomitant]
     Indication: PROPHYLAXIS OF NAUSEA AND VOMITING
     Dosage: 40 MILLIGRAM DAILY; FORM OF ADMINISTRATION: VIALS
     Route: 042
     Dates: start: 20150601, end: 20150605

REACTIONS (3)
  - Pyrexia [Not Recovered/Not Resolved]
  - Sepsis [Not Recovered/Not Resolved]
  - Neutropenia [Not Recovered/Not Resolved]

NARRATIVE: CASE EVENT DATE: 20150614
